FAERS Safety Report 10456026 (Version 1)
Quarter: 2014Q3

REPORT INFORMATION
  Report Type: Spontaneous
  Country: US (occurrence: None)
  Receive Date: 20140818
  Receipt Date: 20140818
  Transmission Date: 20150326
  Serious: Yes (Hospitalization)
  Sender: FDA-Public Use
  Company Number: 20120824VANCO3296

PATIENT
  Age: 69 Year
  Sex: Female

DRUGS (8)
  1. VITAMIN B (VITAMIN B COMPLEX) [Concomitant]
  2. FLORAQ (LACTOBACILLUS ACIDOPHILUS) [Concomitant]
  3. NEURONTIN [Concomitant]
     Active Substance: GABAPENTIN
  4. ZOLOFT [Concomitant]
     Active Substance: SERTRALINE HYDROCHLORIDE
  5. PERCOCET (TYLOX /00446701/) [Concomitant]
  6. VITAMIN D (COLECALCIFEROL) [Concomitant]
  7. VANCOCIN [Suspect]
     Active Substance: VANCOMYCIN HYDROCHLORIDE
     Indication: DIARRHOEA
     Route: 048
     Dates: start: 20120718, end: 20120721
  8. KLONOPIN [Concomitant]
     Active Substance: CLONAZEPAM

REACTIONS (1)
  - Drug ineffective [None]

NARRATIVE: CASE EVENT DATE: 20120718
